FAERS Safety Report 4514500-7 (Version None)
Quarter: 2004Q4

REPORT INFORMATION
  Report Type: 
  Country: None (occurrence: None)
  Receive Date: 20040928
  Receipt Date: 20040629
  Transmission Date: 20050328
  Serious: No
  Sender: FDA-Public Use
  Company Number: 04P-163-0265020

PATIENT
  Age: 80 Year
  Sex: Female
  Weight: 54.4316 kg

DRUGS (9)
  1. HUMIRA 40  (ADALIMUMAB) [Suspect]
     Indication: RHEUMATOID ARTHRITIS
     Dosage: 40 MG, 1 IN 2 WK, SUBCUTANEOUS
     Route: 058
     Dates: start: 20040201
  2. BUCINDOLOL HYDROCHLORIDE [Concomitant]
  3. METHOTREXATE [Concomitant]
  4. HYDROXYCHLOROQUINE PHOSPHATE [Concomitant]
  5. PREDNISONE [Concomitant]
  6. OMEPRAZOLE [Concomitant]
  7. FOLIC ACID [Concomitant]
  8. ALPRAZOLAM [Concomitant]
  9. CALCIUM CITRATE [Concomitant]

REACTIONS (1)
  - PHOTOSENSITIVITY REACTION [None]
